FAERS Safety Report 9454442 (Version 3)
Quarter: 2013Q3

REPORT INFORMATION
  Report Type: Spontaneous
  Country: SE (occurrence: SE)
  Receive Date: 20130812
  Receipt Date: 20130917
  Transmission Date: 20140515
  Serious: Yes (Other)
  Sender: FDA-Public Use
  Company Number: SE-PFIZER INC-2013203124

PATIENT
  Age: 82 Year
  Sex: Female

DRUGS (1)
  1. DALACIN [Suspect]
     Dosage: 10 ML, 3X/DAY
     Route: 048
     Dates: start: 20130627, end: 2013

REACTIONS (7)
  - Pyrexia [Unknown]
  - Oral mucosal blistering [Unknown]
  - Glossodynia [Unknown]
  - Oral discomfort [Unknown]
  - Product taste abnormal [Unknown]
  - Skin burning sensation [Unknown]
  - Dysgeusia [Unknown]
